FAERS Safety Report 8598329 (Version 2)
Quarter: 2013Q2

REPORT INFORMATION
  Report Type: Spontaneous
  Country: US (occurrence: US)
  Receive Date: 20120605
  Receipt Date: 20130621
  Transmission Date: 20140414
  Serious: No
  Sender: FDA-Public Use
  Company Number: US-ASTRAZENECA-2012SE34537

PATIENT
  Age: 726 Month
  Sex: Female

DRUGS (7)
  1. NEXIUM [Suspect]
     Indication: GASTROOESOPHAGEAL REFLUX DISEASE
     Dosage: TWO TIMES A DAY
     Route: 048
     Dates: start: 200405, end: 201108
  2. OMEPRAZOL [Suspect]
     Indication: GASTROOESOPHAGEAL REFLUX DISEASE
     Dosage: DAILY
     Route: 048
     Dates: start: 201201
  3. TOPROL XL [Concomitant]
     Dates: start: 201012, end: 201108
  4. VITAMIN D [Concomitant]
  5. FISH OIL [Concomitant]
  6. CETRIZINE HCL [Concomitant]
     Indication: SINUS DISORDER
  7. LOSARTAN HCT [Concomitant]
     Indication: BLOOD PRESSURE ABNORMAL

REACTIONS (7)
  - Osteoporosis [Unknown]
  - Back pain [Unknown]
  - Pain in extremity [Unknown]
  - Multiple fractures [Unknown]
  - Cataract [Unknown]
  - Depression [Unknown]
  - Liver disorder [Unknown]
